FAERS Safety Report 4782472-6 (Version None)
Quarter: 2005Q3

REPORT INFORMATION
  Report Type: 
  Country: None (occurrence: None)
  Receive Date: 20050929
  Receipt Date: 20041202
  Transmission Date: 20060218
  Serious: No
  Sender: FDA-Public Use
  Company Number: 393089

PATIENT
  Age: 70 Year
  Sex: Male

DRUGS (3)
  1. COREG [Suspect]
     Indication: HYPERTENSION
     Dosage: 6.25MG TWICE PER DAY
     Route: 048
     Dates: start: 20040701
  2. INSULIN [Concomitant]
  3. GLYNASE [Concomitant]

REACTIONS (5)
  - COUGH [None]
  - DYSPNOEA [None]
  - HYPERGLYCAEMIA [None]
  - OEDEMA PERIPHERAL [None]
  - WEIGHT INCREASED [None]
